FAERS Safety Report 16464927 (Version 8)
Quarter: 2020Q1

REPORT INFORMATION
  Report Type: Spontaneous
  Country: US (occurrence: US)
  Receive Date: 20190621
  Receipt Date: 20200121
  Transmission Date: 20200409
  Serious: Yes (Death, Hospitalization, Other)
  Sender: FDA-Public Use
  Company Number: PHEH2019US025576

PATIENT
  Age: 47 Year
  Sex: Male
  Weight: 99 kg

DRUGS (3)
  1. LENVATINIB [Suspect]
     Active Substance: LENVATINIB
     Indication: THYROID CANCER STAGE IV
     Dosage: 18 MG, QD
     Route: 048
     Dates: start: 20190606, end: 201909
  2. AFINITOR [Suspect]
     Active Substance: EVEROLIMUS
     Dosage: UNK
     Route: 065
  3. AFINITOR [Suspect]
     Active Substance: EVEROLIMUS
     Indication: THYROID CANCER STAGE IV
     Dosage: 5 MG, QD
     Route: 048
     Dates: start: 20190606, end: 201909

REACTIONS (11)
  - Thyroid cancer stage IV [Fatal]
  - Diarrhoea [Recovered/Resolved]
  - Deep vein thrombosis [Recovered/Resolved]
  - Rib fracture [Recovered/Resolved with Sequelae]
  - Yellow skin [Unknown]
  - Vomiting [Unknown]
  - Pain [Unknown]
  - Product use in unapproved indication [Unknown]
  - Pulmonary embolism [Recovered/Resolved]
  - Metastases to bone [Unknown]
  - Nausea [Unknown]

NARRATIVE: CASE EVENT DATE: 201906
